FAERS Safety Report 25699673 (Version 2)
Quarter: 2025Q3

REPORT INFORMATION
  Report Type: Spontaneous
  Country: EU (occurrence: EU)
  Receive Date: 20250819
  Receipt Date: 20250904
  Transmission Date: 20251021
  Serious: Yes (Death, Other)
  Sender: MYLAN
  Company Number: EU-MYLANLABS-2025M1069591

PATIENT
  Age: 22 Year
  Sex: Male

DRUGS (5)
  1. PAROXETINE [Interacting]
     Active Substance: PAROXETINE
     Indication: Major depression
  2. PAROXETINE [Interacting]
     Active Substance: PAROXETINE
     Indication: Panic disorder
  3. QUETIAPINE [Interacting]
     Active Substance: QUETIAPINE
     Indication: Major depression
  4. ALPRAZOLAM [Interacting]
     Active Substance: ALPRAZOLAM
     Indication: Panic disorder
  5. CLOZAPINE [Interacting]
     Active Substance: CLOZAPINE
     Indication: Antipsychotic therapy

REACTIONS (10)
  - Ventricular arrhythmia [Fatal]
  - Serotonin syndrome [Fatal]
  - Completed suicide [Fatal]
  - Intentional overdose [Fatal]
  - Toxicity to various agents [Fatal]
  - Drug interaction [Fatal]
  - Bladder dilatation [Unknown]
  - Brain oedema [Unknown]
  - Pulmonary congestion [Unknown]
  - Pulmonary oedema [Unknown]
